FAERS Safety Report 12319110 (Version 1)
Quarter: 2016Q2

REPORT INFORMATION
  Report Type: Spontaneous
  Country: BE (occurrence: BE)
  Receive Date: 20160429
  Receipt Date: 20160429
  Transmission Date: 20160815
  Serious: Yes (Disabling)
  Sender: FDA-Public Use
  Company Number: BE-ASTRAZENECA-2016SE21740

PATIENT
  Age: 69 Year
  Sex: Male
  Weight: 75 kg

DRUGS (6)
  1. TRANSTEC [Concomitant]
     Active Substance: BUPRENORPHINE
     Dosage: 30MG/37.5 CM2
  2. ZYLORIC [Concomitant]
     Active Substance: ALLOPURINOL
  3. CRESTOR [Suspect]
     Active Substance: ROSUVASTATIN CALCIUM
     Indication: HYPERCHOLESTEROLAEMIA
     Route: 048
     Dates: start: 2010
  4. PRIMPERAN [Concomitant]
     Active Substance: METOCLOPRAMIDE HYDROCHLORIDE
     Dosage: THREE TIMES A DAY
  5. PANTOMED [Concomitant]
     Active Substance: DEXPANTHENOL
  6. SOTALEX [Concomitant]
     Active Substance: SOTALOL
     Dosage: DAILY

REACTIONS (5)
  - Muscular weakness [Not Recovered/Not Resolved]
  - Diarrhoea [Not Recovered/Not Resolved]
  - Constipation [Not Recovered/Not Resolved]
  - Myalgia [Not Recovered/Not Resolved]
  - Abdominal pain [Not Recovered/Not Resolved]
